FAERS Safety Report 6866989-6 (Version None)
Quarter: 2010Q3

REPORT INFORMATION
  Report Type: 
  Country: None (occurrence: None)
  Receive Date: 20100722
  Receipt Date: 20100722
  Transmission Date: 20110219
  Serious: Yes (Disabling, Other)
  Sender: FDA-Public Use
  Company Number: None

PATIENT
  Age: 65 Year
  Sex: Female
  Weight: 54.4316 kg

DRUGS (1)
  1. CIPROFLOXACIN [Suspect]
     Indication: DIVERTICULITIS
     Dosage: 500 MG TWICE / DAY ORAL
     Route: 048
     Dates: start: 20100608, end: 20100615

REACTIONS (3)
  - GAIT DISTURBANCE [None]
  - TENDON PAIN [None]
  - TENDONITIS [None]
